FAERS Safety Report 19040859 (Version 1)
Quarter: 2021Q1

REPORT INFORMATION
  Report Type: Spontaneous
  Country: US (occurrence: US)
  Receive Date: 20210322
  Receipt Date: 20210322
  Transmission Date: 20210420
  Serious: Yes (Other)
  Sender: FDA-Public Use
  Company Number: US-BAXTER-2021BAX005297

PATIENT
  Age: 69 Year
  Sex: Female
  Weight: 68 kg

DRUGS (4)
  1. MIDAZOLAM HYDROCHLORIDE INJECTION, USP [Suspect]
     Active Substance: MIDAZOLAM HYDROCHLORIDE
     Indication: TOE OPERATION
     Route: 065
     Dates: start: 20190814, end: 20190814
  2. CEFAZOLIN INJECTION [Suspect]
     Active Substance: CEFAZOLIN
     Indication: TOE OPERATION
     Route: 042
     Dates: start: 20190814, end: 20190814
  3. LIDOCAINE HYDROCHLORIDE AND 5% DEXTROSE INJECTION, USP [Suspect]
     Active Substance: LIDOCAINE HYDROCHLORIDE
     Indication: TOE OPERATION
     Route: 065
     Dates: start: 20190814, end: 20190814
  4. PROPOFOL. [Suspect]
     Active Substance: PROPOFOL
     Indication: TOE OPERATION
     Route: 065
     Dates: start: 20190814, end: 20190814

REACTIONS (2)
  - Biliary dilatation [Unknown]
  - Pulmonary pain [Recovering/Resolving]

NARRATIVE: CASE EVENT DATE: 20190814
